FAERS Safety Report 25483916 (Version 2)
Quarter: 2025Q3

REPORT INFORMATION
  Report Type: Spontaneous
  Country: EU (occurrence: EU)
  Receive Date: 20250626
  Receipt Date: 20250709
  Transmission Date: 20251021
  Serious: Yes (Hospitalization, Other)
  Sender: PFIZER
  Company Number: EU-MacroGenics-20241200003

PATIENT
  Age: 70 Year
  Sex: Male
  Weight: 90 kg

DRUGS (10)
  1. DOCETAXEL [Suspect]
     Active Substance: DOCETAXEL
     Indication: Hormone-refractory prostate cancer
     Dosage: 75 MILLIGRAM PER SQUARE METRE, Q3W
     Route: 042
     Dates: start: 20240507, end: 20240507
  2. DOCETAXEL [Suspect]
     Active Substance: DOCETAXEL
     Indication: Prostate cancer metastatic
     Dosage: 75 MILLIGRAM PER SQUARE METRE, Q3W
     Route: 042
     Dates: start: 20241022, end: 20241022
  3. LORIGERLIMAB [Suspect]
     Active Substance: LORIGERLIMAB
     Indication: Hormone-refractory prostate cancer
     Dosage: 6 MILLIGRAM PER KILOGRAM, Q3W
     Route: 042
     Dates: start: 20240507, end: 20240507
  4. LORIGERLIMAB [Suspect]
     Active Substance: LORIGERLIMAB
     Indication: Prostate cancer metastatic
     Dosage: 6 MILLIGRAM PER KILOGRAM, Q3W
     Route: 042
     Dates: start: 20241203, end: 20241203
  5. LORIGERLIMAB [Suspect]
     Active Substance: LORIGERLIMAB
     Dosage: 6 MILLIGRAM PER KILOGRAM, Q3W
     Route: 042
     Dates: start: 20250225
  6. PREDNISONE [Suspect]
     Active Substance: PREDNISONE
     Indication: Hormone-refractory prostate cancer
     Dosage: 10 MG, 1X/DAY
     Route: 048
     Dates: start: 20240507, end: 20241116
  7. PREDNISONE [Suspect]
     Active Substance: PREDNISONE
     Indication: Prostate cancer metastatic
     Dosage: 10 MILLIGRAM, QD
     Route: 048
     Dates: start: 20241112, end: 20241202
  8. PREDNISONE [Suspect]
     Active Substance: PREDNISONE
     Dosage: 5 MG, 1X/DAY
     Route: 048
     Dates: start: 20241202, end: 20241202
  9. HYDROCORTISONE [Concomitant]
     Active Substance: HYDROCORTISONE
     Indication: Adrenal insufficiency
     Route: 048
     Dates: start: 20241203
  10. PREDNISOLONE [Concomitant]
     Active Substance: PREDNISOLONE
     Indication: Immune-mediated arthritis
     Dosage: 7.5 MG, 1X/DAY (1-0-0)
     Route: 048
     Dates: start: 20250204

REACTIONS (2)
  - Adrenal insufficiency [Not Recovered/Not Resolved]
  - Hyperglycaemia [Recovered/Resolved with Sequelae]

NARRATIVE: CASE EVENT DATE: 20241203
